FAERS Safety Report 18657671 (Version 1)
Quarter: 2020Q4

REPORT INFORMATION
  Report Type: Report from Study
  Country: US (occurrence: US)
  Receive Date: 20201223
  Receipt Date: 20201223
  Transmission Date: 20210114
  Serious: Yes (Other)
  Sender: FDA-Public Use
  Company Number: US-ASTRAZENECA-2020SF58419

PATIENT
  Age: 15 Year
  Sex: Female
  Weight: 63 kg

DRUGS (21)
  1. BENADRYL [Concomitant]
     Active Substance: DIPHENHYDRAMINE HYDROCHLORIDE
     Indication: PRURITUS
  2. MELATONIN [Concomitant]
     Active Substance: MELATONIN
     Route: 048
  3. IMODIUM [Concomitant]
     Active Substance: LOPERAMIDE HYDROCHLORIDE
     Dosage: 2.0MG UNKNOWN
  4. CARAFATE [Concomitant]
     Active Substance: SUCRALFATE
     Route: 048
  5. PEPCID [Concomitant]
     Active Substance: FAMOTIDINE
     Indication: NAUSEA
     Dosage: 20.0MG UNKNOWN
  6. MIRALAX [Concomitant]
     Active Substance: POLYETHYLENE GLYCOL 3350
     Dosage: 1 CAPFUL IN 8OZ WATER DAILY
  7. PERIACTIN [Concomitant]
     Active Substance: CYPROHEPTADINE HYDROCHLORIDE
     Dosage: 4 MG; AT BEDTIME TAKE 1/2 TABLET EACH NIGHT FOR 1 WEEK; THEN INCREASE TO 1 TABLET EACH NIGHT
     Route: 048
  8. CLINDAGEL [Concomitant]
     Active Substance: CLINDAMYCIN PHOSPHATE
  9. BACITRACIN. [Concomitant]
     Active Substance: BACITRACIN
     Dosage: AS REQUIRED
  10. BENTYL [Concomitant]
     Active Substance: DICYCLOMINE HYDROCHLORIDE
     Route: 048
  11. ZOFRAN-ODT [Concomitant]
     Dosage: 4.0MG EVERY 8 - 12 HOURS
     Route: 048
  12. KOSELUGO [Suspect]
     Active Substance: SELUMETINIB
     Indication: NEUROFIBROMATOSIS
     Route: 048
     Dates: start: 20201005
  13. MOTRIN [Concomitant]
     Active Substance: IBUPROFEN
     Dosage: 200.0MG EVERY 8 - 12 HOURS
     Route: 048
  14. ATARAX [Concomitant]
     Active Substance: HYDROXYZINE HYDROCHLORIDE
     Indication: PRURITUS
     Dosage: 25.0MG EVERY 4 - 6 HOURS
     Route: 048
  15. ONDANSETRON [Concomitant]
     Active Substance: ONDANSETRON
     Dosage: 4.0MG UNKNOWN
  16. KOSELUGO [Suspect]
     Active Substance: SELUMETINIB
     Indication: NEUROFIBROMA
     Route: 048
     Dates: start: 20201005
  17. PROTONIX [Concomitant]
     Active Substance: PANTOPRAZOLE SODIUM
     Route: 048
  18. MAXALT [Concomitant]
     Active Substance: RIZATRIPTAN BENZOATE
     Indication: MIGRAINE
     Dosage: 1 TAB AS NEEDED; 2 HOURS LATER IF HEADACHES PERSISTS; NO MORE THAN 4 TABS A WEEK.
     Route: 048
  19. CLINDAGEL [Concomitant]
     Active Substance: CLINDAMYCIN PHOSPHATE
  20. AQUAPHOR [Concomitant]
     Active Substance: PETROLATUM
  21. TYLENOL [Concomitant]
     Active Substance: ACETAMINOPHEN
     Dosage: 325.0MG EVERY 4 - 6 HOURS
     Route: 048

REACTIONS (9)
  - Blood chloride increased [Not Recovered/Not Resolved]
  - Dermatitis acneiform [Recovering/Resolving]
  - Abdominal discomfort [Not Recovered/Not Resolved]
  - Nausea [Recovering/Resolving]
  - Intestinal obstruction [Unknown]
  - Blood bicarbonate decreased [Not Recovered/Not Resolved]
  - Blood urea increased [Not Recovered/Not Resolved]
  - Fatigue [Recovering/Resolving]
  - Dehydration [Not Recovered/Not Resolved]
